FAERS Safety Report 18299174 (Version 1)
Quarter: 2020Q3

REPORT INFORMATION
  Report Type: Spontaneous
  Country: US (occurrence: US)
  Receive Date: 20200922
  Receipt Date: 20200922
  Transmission Date: 20201103
  Serious: Yes (Disabling)
  Sender: FDA-Public Use
  Company Number: None

PATIENT
  Age: 69 Year
  Sex: Female
  Weight: 49.9 kg

DRUGS (2)
  1. HEARING AID [Concomitant]
  2. GENTAMICIN SOLUTION [Suspect]
     Active Substance: GENTAMICIN
     Indication: OTORRHOEA
     Dosage: ?          QUANTITY:10 GTT DROP(S);?
     Route: 001
     Dates: start: 20190916, end: 20190917

REACTIONS (1)
  - Deafness [None]
